FAERS Safety Report 9452751 (Version 1)
Quarter: 2013Q3

REPORT INFORMATION
  Report Type: Report from Study
  Country: AU (occurrence: AU)
  Receive Date: 20130812
  Receipt Date: 20130812
  Transmission Date: 20140515
  Serious: Yes (Other)
  Sender: FDA-Public Use
  Company Number: PHHY2013AU085643

PATIENT
  Sex: Female

DRUGS (2)
  1. ACLASTA [Suspect]
     Dosage: 5 MG
     Route: 042
  2. ACLASTA [Suspect]
     Dosage: 5 MG
     Route: 042

REACTIONS (2)
  - Vein disorder [Not Recovered/Not Resolved]
  - Poor venous access [Not Recovered/Not Resolved]
